FAERS Safety Report 21719357 (Version 1)
Quarter: 2022Q4

REPORT INFORMATION
  Report Type: Spontaneous
  Country: US (occurrence: US)
  Receive Date: 20221213
  Receipt Date: 20221213
  Transmission Date: 20230112
  Serious: Yes (Hospitalization)
  Sender: FDA-Public Use
  Company Number: US-002147023-NVSC2022US286227

PATIENT
  Sex: Female

DRUGS (1)
  1. ALBUTEROL SULFATE [Suspect]
     Active Substance: ALBUTEROL SULFATE
     Indication: Product used for unknown indication
     Dosage: UNK UNK, TID (EVERY 4 HRS)
     Route: 065

REACTIONS (6)
  - Dyspnoea [Unknown]
  - Lymphoedema [Unknown]
  - Peripheral swelling [Unknown]
  - Fatigue [Unknown]
  - Secretion discharge [Unknown]
  - Cough [Unknown]
